FAERS Safety Report 7488888-1 (Version None)
Quarter: 2011Q2

REPORT INFORMATION
  Report Type: 
  Country: None (occurrence: None)
  Receive Date: 20110518
  Receipt Date: 20110512
  Transmission Date: 20111010
  Serious: Yes (Life-Threatening, Hospitalization)
  Sender: FDA-Public Use
  Company Number: PHHY2011ES40089

PATIENT
  Age: 71 Year
  Sex: Female

DRUGS (7)
  1. SINTROM [Suspect]
     Dosage: UNK
     Dates: start: 20100811
  2. EZETIMIBE [Suspect]
     Dosage: 4 MG, UNK
     Route: 048
  3. DIGOXIN [Concomitant]
     Indication: CARDIAC FAILURE
     Dosage: 0.75 MG, WEEKLY
     Route: 048
  4. OMEPRAZOLE [Suspect]
  5. PRAVASTATIN [Concomitant]
     Indication: HYPERLIPIDAEMIA
     Dosage: 40 MG, UNK
     Route: 048
     Dates: start: 20070201
  6. SINTROM [Suspect]
     Indication: CARDIAC VALVE PROSTHESIS USER
     Dosage: 4 MG, UNK
     Route: 048
     Dates: end: 20100804
  7. VALSARTAN [Concomitant]
     Indication: CARDIAC FAILURE
     Dosage: 160 MG, DAILY
     Route: 048
     Dates: start: 20070201, end: 20100804

REACTIONS (10)
  - MENTAL IMPAIRMENT [None]
  - HEADACHE [None]
  - CEREBRAL HAEMATOMA [None]
  - HAEMORRHAGE INTRACRANIAL [None]
  - SPEECH DISORDER [None]
  - DISORIENTATION [None]
  - PARAESTHESIA [None]
  - BLOOD PRESSURE DECREASED [None]
  - INTERNATIONAL NORMALISED RATIO INCREASED [None]
  - DRUG INTERACTION [None]
